FAERS Safety Report 6686628-7 (Version None)
Quarter: 2010Q2

REPORT INFORMATION
  Report Type: 
  Country: None (occurrence: None)
  Receive Date: 20100419
  Receipt Date: 20100405
  Transmission Date: 20101027
  Serious: Yes (Hospitalization, Other)
  Sender: FDA-Public Use
  Company Number: US-ELI_LILLY_AND_COMPANY-US201004002809

PATIENT
  Sex: Female

DRUGS (13)
  1. FORTEO [Suspect]
     Indication: OSTEOPOROSIS
     Dosage: 20 UG, DAILY (1/D)
     Dates: start: 20080501
  2. TEGRETOL [Concomitant]
  3. CARBIDOPA [Concomitant]
  4. COMTAN [Concomitant]
  5. LISINOPRIL [Concomitant]
  6. NITROFURAN [Concomitant]
  7. LIPITOR [Concomitant]
  8. OXYCODONE [Concomitant]
     Dosage: 5 MG, UNK
  9. XANAX [Concomitant]
  10. NEURONTIN [Concomitant]
  11. PRILOSEC [Concomitant]
  12. WARFARIN [Concomitant]
  13. LEXAPRO [Concomitant]

REACTIONS (5)
  - BREAST CANCER STAGE II [None]
  - BREAST MASS [None]
  - COGNITIVE DISORDER [None]
  - KNEE ARTHROPLASTY [None]
  - PAIN IN JAW [None]
